FAERS Safety Report 22086927 (Version 2)
Quarter: 2023Q1

REPORT INFORMATION
  Report Type: Report from Study
  Country: JP (occurrence: JP)
  Receive Date: 20230312
  Receipt Date: 20230319
  Transmission Date: 20230417
  Serious: Yes (Hospitalization)
  Sender: FDA-Public Use
  Company Number: JP-JNJFOC-20230214052

PATIENT
  Age: 66 Year
  Sex: Male
  Weight: 49 kg

DRUGS (1)
  1. ERLEADA [Suspect]
     Active Substance: APALUTAMIDE
     Indication: Prostate cancer metastatic
     Route: 048
     Dates: start: 20230131, end: 20230228

REACTIONS (6)
  - Calculus urinary [Recovering/Resolving]
  - Urinary retention [Recovering/Resolving]
  - Abnormal behaviour [Recovering/Resolving]
  - Rash [Recovering/Resolving]
  - Pollakiuria [Not Recovered/Not Resolved]
  - Haematuria [Not Recovered/Not Resolved]

NARRATIVE: CASE EVENT DATE: 20230101
